FAERS Safety Report 13272979 (Version 2)
Quarter: 2017Q1

REPORT INFORMATION
  Report Type: Report from Study
  Country: KR (occurrence: KR)
  Receive Date: 20170227
  Receipt Date: 20170331
  Transmission Date: 20170428
  Serious: Yes (Other)
  Sender: FDA-Public Use
  Company Number: KR-OTSUKA-2017_002812

PATIENT
  Age: 59 Year
  Sex: Male

DRUGS (23)
  1. TOLVAPTAN [Suspect]
     Active Substance: TOLVAPTAN
     Dosage: 7.5 MG, QD
     Route: 048
     Dates: start: 20141029, end: 20141030
  2. MANNITOL. [Concomitant]
     Active Substance: MANNITOL
     Indication: PRE-EXISTING DISEASE
     Dosage: 400 ML, QD
     Route: 042
     Dates: start: 20141006, end: 20141027
  3. GLUCOSE [Concomitant]
     Active Substance: DEXTROSE
     Indication: PRE-EXISTING DISEASE
     Dosage: 300 ML, QD
     Route: 042
     Dates: start: 20141019, end: 20141026
  4. ZANTAC [Concomitant]
     Active Substance: RANITIDINE HYDROCHLORIDE
     Indication: PROPHYLAXIS
     Dosage: 300 MG, QD
     Route: 048
     Dates: start: 20141011, end: 20150509
  5. URUSA [Concomitant]
     Indication: PROPHYLAXIS
     Dosage: 300 MG, QD
     Route: 048
     Dates: start: 20141020, end: 20141026
  6. TOLVAPTAN [Suspect]
     Active Substance: TOLVAPTAN
     Indication: HYPONATRAEMIA
     Dosage: 7.5 MG, QD
     Route: 048
     Dates: start: 20141021, end: 20141021
  7. MUCOMYST [Concomitant]
     Active Substance: ACETYLCYSTEINE
     Indication: PRE-EXISTING DISEASE
     Dosage: 16 ML, QD
     Route: 055
     Dates: start: 20141006, end: 20141026
  8. TACENOL [Concomitant]
     Indication: PRE-EXISTING DISEASE
     Dosage: 1300 MG, QD
     Route: 048
     Dates: start: 20141016, end: 20141021
  9. NAXEN-F [Concomitant]
     Indication: PRE-EXISTING DISEASE
     Dosage: 1000 MG, QD
     Route: 048
     Dates: start: 20141023, end: 20141024
  10. TOLVAPTAN [Suspect]
     Active Substance: TOLVAPTAN
     Dosage: 30 MG, QD
     Route: 048
     Dates: start: 20141024, end: 20141024
  11. TAZORACTAM [Concomitant]
     Indication: PRE-EXISTING DISEASE
     Dosage: 13.5 G, QD
     Route: 042
     Dates: start: 20141019, end: 20141026
  12. MUCOSOL [Concomitant]
     Active Substance: ACETYLCYSTEINE
     Indication: PRE-EXISTING DISEASE
     Dosage: 24 MG, QD
     Route: 048
     Dates: start: 20141011, end: 20141019
  13. KEPPRA [Concomitant]
     Active Substance: LEVETIRACETAM
     Indication: PRE-EXISTING DISEASE
     Dosage: 1000 MG, QD
     Route: 048
     Dates: start: 20141005, end: 20150509
  14. TANTUM [Concomitant]
     Active Substance: BENZYDAMINE HYDROCHLORIDE
     Indication: PROPHYLAXIS
     Dosage: 200 ML, QD (GARGLE)
     Route: 065
     Dates: start: 20141022, end: 20141022
  15. TOLVAPTAN [Suspect]
     Active Substance: TOLVAPTAN
     Dosage: 7.5 MG, QD
     Route: 048
     Dates: start: 20141023, end: 20141023
  16. TOLVAPTAN [Suspect]
     Active Substance: TOLVAPTAN
     Dosage: 30 MG, QD
     Route: 048
     Dates: start: 20141028, end: 20141028
  17. DENOGAN [Concomitant]
     Active Substance: PROPACETAMOL HYDROCHLORIDE
     Indication: PRE-EXISTING DISEASE
     Dosage: 1 G, QD
     Route: 042
     Dates: start: 20141022, end: 20141022
  18. SOLONDO [Concomitant]
     Active Substance: PREDNISOLONE
     Indication: PRE-EXISTING DISEASE
     Dosage: 7.5 MG, QD
     Route: 048
     Dates: start: 20141024, end: 20141108
  19. SYNTHROID [Concomitant]
     Active Substance: LEVOTHYROXINE SODIUM
     Indication: PRE-EXISTING DISEASE
     Dosage: 0.1 MG, QD
     Route: 048
     Dates: start: 20141024
  20. DENOGAN [Concomitant]
     Active Substance: PROPACETAMOL HYDROCHLORIDE
     Dosage: 2 G, QD
     Route: 042
     Dates: start: 20141101, end: 20141101
  21. TOLVAPTAN [Suspect]
     Active Substance: TOLVAPTAN
     Dosage: 15 MG, QD
     Route: 048
     Dates: start: 20141022, end: 20141022
  22. VENTOLIN NEBULAS [Concomitant]
     Indication: PRE-EXISTING DISEASE
     Dosage: 10 MG, QD (INHALER)
     Route: 055
     Dates: start: 20141018, end: 20141026
  23. KETOLAN [Concomitant]
     Indication: PRE-EXISTING DISEASE
     Dosage: 30 MG, QD
     Route: 042
     Dates: start: 20141023, end: 20141023

REACTIONS (3)
  - Pruritus [Recovered/Resolved]
  - Underdose [Unknown]
  - Hypertensive hydrocephalus [Recovered/Resolved]

NARRATIVE: CASE EVENT DATE: 20141021
